FAERS Safety Report 7073607-3 (Version None)
Quarter: 2010Q4

REPORT INFORMATION
  Report Type: 
  Country: None (occurrence: None)
  Receive Date: 20101029
  Receipt Date: 20100716
  Transmission Date: 20110411
  Serious: No
  Sender: FDA-Public Use
  Company Number: A0870814A

PATIENT
  Age: 68 Year
  Sex: Female

DRUGS (8)
  1. ADVAIR DISKUS 100/50 [Suspect]
     Indication: CHRONIC OBSTRUCTIVE PULMONARY DISEASE
     Dosage: 1PUFF TWICE PER DAY
     Route: 055
     Dates: start: 20060101
  2. DORZOLAMIDE [Concomitant]
  3. XALATAN [Concomitant]
  4. ACTONEL [Concomitant]
  5. EVISTA [Concomitant]
  6. LISINOPRIL [Concomitant]
  7. CENTRUM [Concomitant]
  8. VITAMIN D [Concomitant]

REACTIONS (2)
  - OPTIC NERVE CUPPING [None]
  - VISUAL FIELD DEFECT [None]
